FAERS Safety Report 9516531 (Version 1)
Quarter: 2013Q1

REPORT INFORMATION
  Report Type: Spontaneous
  Country: US (occurrence: None)
  Receive Date: 20130305
  Receipt Date: 20130305
  Transmission Date: 20140127
  Serious: Yes (Hospitalization)
  Sender: FDA-Public Use
  Company Number: 163-21880-12080610

PATIENT
  Age: 85 Year
  Sex: Male

DRUGS (6)
  1. REVLIMID [Suspect]
     Indication: PLASMA CELL MYELOMA
     Dosage: 5 MG/ML, 21 IN 21 D, PO
     Route: 048
     Dates: start: 20110303
  2. MAGNESIUM ASPARTATE (MAGNESIUM ASPARTATE) [Concomitant]
  3. COREG (CARVEDILOL) [Concomitant]
  4. COLCHICINE (COLCHICINE) [Concomitant]
  5. LOMOTIL (LOMOTIL) [Concomitant]
  6. ASPIRIN LOW (ACETYLSALICYLIC ACID) [Concomitant]

REACTIONS (2)
  - Dehydration [None]
  - Full blood count decreased [None]
